FAERS Safety Report 7875629-9 (Version None)
Quarter: 2011Q4

REPORT INFORMATION
  Report Type: 
  Country: None (occurrence: None)
  Receive Date: 20111031
  Receipt Date: 20111020
  Transmission Date: 20120403
  Serious: Yes (Other)
  Sender: FDA-Public Use
  Company Number: ES-CELGENEUS-144-C5013-11090374

PATIENT
  Sex: Male

DRUGS (4)
  1. LENALIDOMIDE [Suspect]
  2. LENALIDOMIDE [Suspect]
     Indication: MULTIPLE MYELOMA
     Dosage: 25 MILLIGRAM
     Route: 048
     Dates: start: 20101201, end: 20101221
  3. DEXAMETHASONE [Suspect]
     Dates: start: 20110907, end: 20110928
  4. DEXAMETHASONE [Suspect]
     Indication: MULTIPLE MYELOMA
     Dosage: 20 MILLIGRAM
     Route: 065
     Dates: start: 20101201, end: 20101221

REACTIONS (1)
  - BLADDER CANCER STAGE IV [None]
